FAERS Safety Report 4700354-2 (Version None)
Quarter: 2005Q2

REPORT INFORMATION
  Report Type: 
  Country: None (occurrence: None)
  Receive Date: 20050624
  Receipt Date: 20040803
  Transmission Date: 20051028
  Serious: Yes (Death)
  Sender: FDA-Public Use
  Company Number: 366293

PATIENT
  Age: 57 Year
  Sex: Male
  Weight: 56.7 kg

DRUGS (1)
  1. XELODA [Suspect]
     Indication: COLON CANCER METASTATIC

REACTIONS (2)
  - COLON CANCER METASTATIC [None]
  - DISEASE PROGRESSION [None]
